FAERS Safety Report 6470699-7 (Version None)
Quarter: 2009Q4

REPORT INFORMATION
  Report Type: 
  Country: None (occurrence: None)
  Receive Date: 20091203
  Receipt Date: 20091125
  Transmission Date: 20100525
  Serious: Yes (Hospitalization)
  Sender: FDA-Public Use
  Company Number: A0802603A

PATIENT
  Age: 51 Year
  Sex: Male
  Weight: 135.5 kg

DRUGS (1)
  1. AVANDIA [Suspect]
     Indication: DIABETES MELLITUS
     Route: 048
     Dates: start: 20030331, end: 20070713

REACTIONS (8)
  - ACUTE RESPIRATORY FAILURE [None]
  - CARDIAC DISORDER [None]
  - CARDIOVASCULAR DISORDER [None]
  - CEREBRAL INFARCTION [None]
  - DILATATION ATRIAL [None]
  - HYPOXIA [None]
  - INTRACARDIAC THROMBUS [None]
  - LEFT VENTRICULAR HYPERTROPHY [None]
